FAERS Safety Report 11701807 (Version 1)
Quarter: 2015Q4

REPORT INFORMATION
  Report Type: Spontaneous
  Country: US (occurrence: US)
  Receive Date: 20151105
  Receipt Date: 20151105
  Transmission Date: 20160304
  Serious: No
  Sender: FDA-Public Use
  Company Number: US-MALLINCKRODT-T201503963

PATIENT
  Sex: Male

DRUGS (1)
  1. FENTANYL TRANSDERMAL SYSTEM [Suspect]
     Active Substance: FENTANYL
     Indication: PRODUCT USED FOR UNKNOWN INDICATION
     Dosage: EXTENDS USE BEYOND 72 HOURS
     Route: 065

REACTIONS (4)
  - Intentional product misuse [Unknown]
  - Product adhesion issue [Unknown]
  - Malaise [Unknown]
  - Mood altered [Unknown]
